FAERS Safety Report 7349950-7 (Version None)
Quarter: 2011Q1

REPORT INFORMATION
  Report Type: 
  Country: None (occurrence: None)
  Receive Date: 20110314
  Receipt Date: 20110311
  Transmission Date: 20110831
  Serious: Yes (Hospitalization)
  Sender: FDA-Public Use
  Company Number: HU-ROCHE-763751

PATIENT
  Sex: Female
  Weight: 50 kg

DRUGS (4)
  1. LAVESTRA [Concomitant]
     Indication: HYPERTENSION
     Dosage: DOSE: 0.5 TABLET
  2. AVASTIN [Suspect]
     Dosage: 4 CYCLES. PERMANENTLY DISCONTINUED.
     Route: 042
     Dates: start: 20100930, end: 20101218
  3. TAXANES [Concomitant]
     Dates: start: 20100930, end: 20101218
  4. CARBOPLATIN [Concomitant]
     Dates: start: 20100930, end: 20101218

REACTIONS (1)
  - METRORRHAGIA [None]
